FAERS Safety Report 8797381 (Version 2)
Quarter: 2015Q1

REPORT INFORMATION
  Report Type: Report from Study
  Country: US (occurrence: US)
  Receive Date: 20120919
  Receipt Date: 20150302
  Transmission Date: 20150721
  Serious: Yes (Death)
  Sender: FDA-Public Use
  Company Number: US-ROCHE-1095287

PATIENT
  Sex: Male

DRUGS (15)
  1. NEULASTA [Concomitant]
     Active Substance: PEGFILGRASTIM
     Route: 058
  2. PREDNISONE. [Concomitant]
     Active Substance: PREDNISONE
     Route: 065
  3. BENADRYL [Concomitant]
     Active Substance: DIPHENHYDRAMINE HYDROCHLORIDE
     Route: 048
  4. CASODEX [Concomitant]
     Active Substance: BICALUTAMIDE
  5. ALOXI [Concomitant]
     Active Substance: PALONOSETRON HYDROCHLORIDE
     Route: 065
  6. LASIX [Concomitant]
     Active Substance: FUROSEMIDE
     Route: 042
  7. ZOLADEX [Concomitant]
     Active Substance: GOSERELIN ACETATE
  8. ZOMETA [Concomitant]
     Active Substance: ZOLEDRONIC ACID
     Route: 042
  9. CISPLATIN. [Concomitant]
     Active Substance: CISPLATIN
     Route: 042
  10. TAXOTERE [Concomitant]
     Active Substance: DOCETAXEL
     Route: 042
  11. DECADRON [Concomitant]
     Active Substance: DEXAMETHASONE
     Route: 042
  12. DECADRON [Concomitant]
     Active Substance: DEXAMETHASONE
     Route: 042
  13. TYLENOL [Concomitant]
     Active Substance: ACETAMINOPHEN
     Route: 048
  14. KETOCONAZOLE. [Concomitant]
     Active Substance: KETOCONAZOLE
  15. AVASTIN [Suspect]
     Active Substance: BEVACIZUMAB
     Indication: PROSTATE CANCER
     Route: 042
     Dates: start: 20060712

REACTIONS (11)
  - Fatigue [Unknown]
  - Malaise [Unknown]
  - Dizziness [Unknown]
  - Death [Fatal]
  - Neurone-specific enolase increased [Unknown]
  - Abdominal distension [Recovered/Resolved]
  - Neuropathy peripheral [Unknown]
  - Back pain [Unknown]
  - Disease progression [Unknown]
  - Off label use [Unknown]
  - Asthenia [Unknown]
